FAERS Safety Report 6754040-8 (Version None)
Quarter: 2010Q2

REPORT INFORMATION
  Report Type: 
  Country: None (occurrence: None)
  Receive Date: 20100603
  Receipt Date: 20100601
  Transmission Date: 20101027
  Serious: Yes (Hospitalization)
  Sender: FDA-Public Use
  Company Number: US-PURDUE-USA-2010-0044275

PATIENT
  Age: 63 Year
  Sex: Male
  Weight: 67.12 kg

DRUGS (6)
  1. MS CONTIN [Suspect]
     Indication: DRUG USE FOR UNKNOWN INDICATION
  2. SUNITINIB MALATE [Suspect]
     Indication: NON-SMALL CELL LUNG CANCER STAGE IV
     Dosage: 37.5 MG, DAILY
     Route: 048
     Dates: start: 20100323, end: 20100418
  3. PEMETREXED [Suspect]
     Indication: NON-SMALL CELL LUNG CANCER STAGE IV
     Dosage: 500 MG/M2, SEE TEXT
     Route: 042
     Dates: start: 20100323, end: 20100413
  4. ACETYLSALICYLIC ACID [Suspect]
     Indication: DRUG USE FOR UNKNOWN INDICATION
  5. REGLAN [Concomitant]
  6. ROXICET [Concomitant]

REACTIONS (6)
  - DIZZINESS [None]
  - HYPOKALAEMIA [None]
  - NAUSEA [None]
  - OESOPHAGITIS [None]
  - UPPER GASTROINTESTINAL HAEMORRHAGE [None]
  - VOMITING [None]
